FAERS Safety Report 9189198 (Version 1)
Quarter: 2013Q1

REPORT INFORMATION
  Report Type: Spontaneous
  Country: US (occurrence: None)
  Receive Date: 20130321
  Receipt Date: 20130321
  Transmission Date: 20140127
  Serious: Yes (Life-Threatening, Other)
  Sender: FDA-Public Use
  Company Number: None

PATIENT
  Sex: Male
  Weight: 79.38 kg

DRUGS (1)
  1. FLUCONAZOLE [Suspect]
     Indication: FUNGAL SKIN INFECTION
     Dates: start: 20130319, end: 20130319

REACTIONS (4)
  - Respiratory distress [None]
  - Chest discomfort [None]
  - Dyspnoea [None]
  - Self-medication [None]
